FAERS Safety Report 18325754 (Version 2)
Quarter: 2020Q4

REPORT INFORMATION
  Report Type: Spontaneous
  Country: RU (occurrence: RU)
  Receive Date: 20200929
  Receipt Date: 20201007
  Transmission Date: 20210113
  Serious: Yes (Other)
  Sender: FDA-Public Use
  Company Number: NVSC2020RU263439

PATIENT
  Sex: Male
  Weight: 61 kg

DRUGS (6)
  1. DABRAFENIB [Suspect]
     Active Substance: DABRAFENIB
     Indication: MALIGNANT MELANOMA
     Dosage: 150 MG, BID
     Route: 065
     Dates: start: 20180420
  2. BIDOP [Concomitant]
     Indication: HYPERTENSION
     Dosage: 5 MG, QD
     Route: 065
  3. DOMPERIDONE [Concomitant]
     Active Substance: DOMPERIDONE
     Indication: NAUSEA
     Dosage: UNK
     Route: 065
  4. INDAPAMIDE. [Concomitant]
     Active Substance: INDAPAMIDE
     Indication: HYPERTENSION
     Dosage: 1/2 TABLET PER DAY
     Route: 065
  5. TRAMETINIB [Suspect]
     Active Substance: TRAMETINIB
     Indication: MALIGNANT MELANOMA
     Dosage: 2 MG, QD(2 MG 1 TAB DAILY)
     Route: 065
     Dates: start: 20180420
  6. SORBIFER DURULES [Concomitant]
     Active Substance: FERROUS SULFATE
     Indication: HAEMOGLOBIN ABNORMAL
     Dosage: UNK
     Route: 065

REACTIONS (7)
  - Decreased appetite [Unknown]
  - Asthenia [Unknown]
  - Polyneuropathy [Unknown]
  - Body temperature increased [Unknown]
  - Pain in extremity [Unknown]
  - Nausea [Unknown]
  - Anaemia [Unknown]
